FAERS Safety Report 5049931-2 (Version None)
Quarter: 2006Q3

REPORT INFORMATION
  Report Type: 
  Country: None (occurrence: None)
  Receive Date: 20060707
  Receipt Date: 20060630
  Transmission Date: 20061208
  Serious: Yes (Death, Hospitalization)
  Sender: FDA-Public Use
  Company Number: 200612430BWH

PATIENT
  Age: 54 Year
  Sex: Male
  Weight: 74.3899 kg

DRUGS (19)
  1. SORAFENIB [Suspect]
     Indication: METASTATIC MALIGNANT MELANOMA
     Dosage: 200 MG, BID, ORAL
     Route: 048
     Dates: start: 20060120, end: 20060308
  2. SORAFENIB [Suspect]
     Indication: METASTATIC MALIGNANT MELANOMA
     Dosage: 200 MG, BID, ORAL
     Route: 048
     Dates: start: 20060526, end: 20060608
  3. PACLITAXEL [Suspect]
     Dosage: SEE IMAGE
     Route: 042
     Dates: start: 20060119, end: 20060307
  4. PACLITAXEL [Suspect]
     Dosage: SEE IMAGE
     Route: 042
     Dates: start: 20060525
  5. CARBOPLATIN [Suspect]
     Dosage: SEE IMAGE
     Route: 042
     Dates: start: 20060119, end: 20060307
  6. CARBOPLATIN [Suspect]
     Dosage: SEE IMAGE
     Route: 042
     Dates: start: 20060525
  7. PEPCID [Concomitant]
  8. BENADRYL [Concomitant]
  9. DECADRON [Concomitant]
  10. AUGMENTIN '125' [Concomitant]
  11. ACETAMINOPHEN [Concomitant]
  12. MAGNESIUM OXIDE [Concomitant]
  13. RHINOCORT AQUA [Concomitant]
  14. CEFEPIME [Concomitant]
  15. ZOFRAN [Concomitant]
  16. COMPAZINE [Concomitant]
  17. NEURONTIN [Concomitant]
  18. OXYCONTIN [Concomitant]
  19. NEUPOGEN [Concomitant]

REACTIONS (14)
  - CHRONIC OBSTRUCTIVE PULMONARY DISEASE [None]
  - COUGH [None]
  - FEBRILE NEUTROPENIA [None]
  - HAEMATOCRIT DECREASED [None]
  - HAEMOGLOBIN DECREASED [None]
  - LYMPHOCYTE PERCENTAGE INCREASED [None]
  - MYALGIA [None]
  - OSTEOPENIA [None]
  - PLATELET COUNT DECREASED [None]
  - RED BLOOD CELL COUNT DECREASED [None]
  - RED CELL DISTRIBUTION WIDTH INCREASED [None]
  - REFUSAL OF TREATMENT BY PATIENT [None]
  - SUDDEN DEATH [None]
  - UPPER RESPIRATORY TRACT INFECTION [None]
